FAERS Safety Report 25554057 (Version 1)
Quarter: 2025Q3

REPORT INFORMATION
  Report Type: Spontaneous
  Country: CA (occurrence: CA)
  Receive Date: 20250715
  Receipt Date: 20250715
  Transmission Date: 20251021
  Serious: Yes (Hospitalization, Other)
  Sender: RANBAXY
  Company Number: CA-SUN PHARMACEUTICAL INDUSTRIES LTD-2025R1-516419

PATIENT
  Age: 33 Year
  Weight: 91 kg

DRUGS (1)
  1. WARFARIN [Suspect]
     Active Substance: WARFARIN
     Indication: Anticoagulant therapy
     Dosage: 7 MILLIGRAM PER MILLILITRE, QD
     Route: 048

REACTIONS (7)
  - Upper gastrointestinal haemorrhage [Recovering/Resolving]
  - Anaemia [Recovering/Resolving]
  - Haematemesis [Recovering/Resolving]
  - Haemoglobin decreased [Recovering/Resolving]
  - International normalised ratio abnormal [Recovering/Resolving]
  - Mallory-Weiss syndrome [Recovering/Resolving]
  - Transfusion [Recovering/Resolving]
